FAERS Safety Report 8223320-1 (Version None)
Quarter: 2012Q1

REPORT INFORMATION
  Report Type: 
  Country: None (occurrence: None)
  Receive Date: 20120321
  Receipt Date: 20120307
  Transmission Date: 20120608
  Serious: Yes (Hospitalization)
  Sender: FDA-Public Use
  Company Number: US-ROCHE-1047510

PATIENT
  Sex: Male

DRUGS (11)
  1. FLUCONAZOLE [Concomitant]
  2. DOXORUBICIN HCL [Suspect]
     Indication: NON-HODGKIN'S LYMPHOMA
     Route: 042
     Dates: start: 20120217, end: 20120222
  3. NEULASTA [Suspect]
     Indication: NON-HODGKIN'S LYMPHOMA
  4. MS CONTIN [Concomitant]
  5. MABTHERA [Suspect]
     Indication: NON-HODGKIN'S LYMPHOMA
     Route: 042
     Dates: start: 20120217, end: 20120222
  6. DEXAMETHASONE [Suspect]
     Indication: NON-HODGKIN'S LYMPHOMA
     Route: 048
  7. METOPROLOL SUCCINATE [Concomitant]
  8. CYCLOPHOSPHAMIDE [Suspect]
     Indication: NON-HODGKIN'S LYMPHOMA
     Route: 042
     Dates: start: 20120217, end: 20120222
  9. VINCRISTINE [Suspect]
     Indication: NON-HODGKIN'S LYMPHOMA
     Route: 042
     Dates: start: 20120217, end: 20120222
  10. VALTREX [Concomitant]
  11. CIPROFLOXACIN [Concomitant]

REACTIONS (2)
  - FEBRILE NEUTROPENIA [None]
  - DEEP VEIN THROMBOSIS [None]
